FAERS Safety Report 5748798-4 (Version None)
Quarter: 2008Q2

REPORT INFORMATION
  Report Type: 
  Country: None (occurrence: None)
  Receive Date: 20080521
  Receipt Date: 20080512
  Transmission Date: 20081010
  Serious: Yes (Hospitalization)
  Sender: FDA-Public Use
  Company Number: 2007-00638

PATIENT
  Age: 62 Year
  Sex: Female
  Weight: 65 kg

DRUGS (5)
  1. VELCADE [Suspect]
     Indication: MULTIPLE MYELOMA
     Dosage: 2.00 MG
     Dates: start: 20060911, end: 20061123
  2. DEXAMETHASONE TAB [Suspect]
     Indication: MULTIPLE MYELOMA
     Dosage: 40.00 MG, ORAL
     Route: 048
     Dates: start: 20060311, end: 20070118
  3. CYCLOPHOSPHAMIDE [Suspect]
     Indication: MULTIPLE MYELOMA
     Dosage: 640.00 MG, INTRAVENOUS
     Route: 042
     Dates: start: 20061218, end: 20070118
  4. ETOPOSIDE [Suspect]
     Indication: MULTIPLE MYELOMA
     Dosage: 64.00 MG, INTRAVENOUS
     Route: 042
     Dates: start: 20061218, end: 20070118
  5. CISPLATIN [Suspect]
     Indication: MULTIPLE MYELOMA
     Dosage: 24.00 MG, INTRAVENOUS
     Route: 042
     Dates: start: 20061218, end: 20070118

REACTIONS (1)
  - FEBRILE BONE MARROW APLASIA [None]
